FAERS Safety Report 9997445 (Version 1)
Quarter: 2014Q1

REPORT INFORMATION
  Report Type: Spontaneous
  Country: US (occurrence: US)
  Receive Date: 20140311
  Receipt Date: 20140311
  Transmission Date: 20141002
  Serious: No
  Sender: FDA-Public Use
  Company Number: US-B.I. PHARMACEUTICALS,INC./RIDGEFIELD-2014-BI-09265BP

PATIENT
  Age: 90 Year
  Sex: Female

DRUGS (1)
  1. ATROVENT INHALATION SOLUTION [Suspect]
     Indication: PRODUCT USED FOR UNKNOWN INDICATION
     Route: 055
     Dates: start: 20140222

REACTIONS (1)
  - Abdominal pain upper [Not Recovered/Not Resolved]
